FAERS Safety Report 15913982 (Version 1)
Quarter: 2019Q1

REPORT INFORMATION
  Report Type: Spontaneous
  Country: US (occurrence: US)
  Receive Date: 20190204
  Receipt Date: 20190204
  Transmission Date: 20190417
  Serious: Yes (Disabling)
  Sender: FDA-Public Use
  Company Number: None

PATIENT
  Age: 28 Year
  Sex: Male
  Weight: 83.25 kg

DRUGS (9)
  1. PROPRANOLOL [Concomitant]
     Active Substance: PROPRANOLOL HYDROCHLORIDE
  2. ESCITALOPRAM [Concomitant]
     Active Substance: ESCITALOPRAM OXALATE
  3. TIZANIDINE. [Concomitant]
     Active Substance: TIZANIDINE
  4. BUPROPION. [Concomitant]
     Active Substance: BUPROPION
  5. DAILY VITAMIN [Concomitant]
     Active Substance: VITAMINS
  6. ONDANSETRON [Concomitant]
     Active Substance: ONDANSETRON
  7. NAPROXEN. [Concomitant]
     Active Substance: NAPROXEN
  8. AIMOVIG [Suspect]
     Active Substance: ERENUMAB-AOOE
     Indication: MIGRAINE
     Dosage: ?          QUANTITY:1 INJECTION(S);OTHER FREQUENCY:ONCE A MONTH;?
     Route: 058
     Dates: start: 20181204
  9. ELETRIPTAN. [Concomitant]
     Active Substance: ELETRIPTAN

REACTIONS (2)
  - Nausea [None]
  - Vomiting projectile [None]

NARRATIVE: CASE EVENT DATE: 20190204
